FAERS Safety Report 15467577 (Version 2)
Quarter: 2018Q4

REPORT INFORMATION
  Report Type: Spontaneous
  Country: US (occurrence: US)
  Receive Date: 20181005
  Receipt Date: 20181204
  Transmission Date: 20190204
  Serious: No
  Sender: FDA-Public Use
  Company Number: US-GLENMARK PHARMACEUTICALS-2018GMK037104

PATIENT

DRUGS (3)
  1. ESZOPICLONE TABLETS, 3MG [Suspect]
     Active Substance: ESZOPICLONE
     Indication: FIBROMYALGIA
     Dosage: 1 DF, OD (AT BEDTIME)
     Route: 065
     Dates: start: 20180517
  2. ESZOPICLONE TABLETS, 3MG [Suspect]
     Active Substance: ESZOPICLONE
     Indication: SLEEP DISORDER
  3. ARMOUR THYROID [Concomitant]
     Active Substance: THYROID, PORCINE
     Indication: HYPOTHYROIDISM
     Dosage: 60 MG, QD
     Route: 065

REACTIONS (3)
  - Product use in unapproved indication [Unknown]
  - Drug effect decreased [Unknown]
  - Product substitution issue [Unknown]

NARRATIVE: CASE EVENT DATE: 20180517
